FAERS Safety Report 23303193 (Version 1)
Quarter: 2023Q4

REPORT INFORMATION
  Report Type: Spontaneous
  Country: US (occurrence: US)
  Receive Date: 20231215
  Receipt Date: 20231215
  Transmission Date: 20240110
  Serious: Yes (Hospitalization)
  Sender: FDA-Public Use
  Company Number: US-ELI_LILLY_AND_COMPANY-US202312003348

PATIENT
  Sex: Female

DRUGS (1)
  1. RETEVMO [Suspect]
     Active Substance: SELPERCATINIB
     Indication: Thyroid cancer metastatic
     Dosage: 160 MG, BID
     Route: 065
     Dates: start: 20210415, end: 202301

REACTIONS (2)
  - Wound [Recovering/Resolving]
  - Vascular insufficiency [Unknown]
